FAERS Safety Report 21341927 (Version 5)
Quarter: 2023Q2

REPORT INFORMATION
  Report Type: Spontaneous
  Country: JP (occurrence: JP)
  Receive Date: 20220916
  Receipt Date: 20230411
  Transmission Date: 20230721
  Serious: Yes (Hospitalization, Other)
  Sender: FDA-Public Use
  Company Number: JP-ONO-2022JP025349

PATIENT
  Age: 77 Year
  Sex: Male
  Weight: 57.8 kg

DRUGS (11)
  1. OPDIVO [Suspect]
     Active Substance: NIVOLUMAB
     Indication: Metastatic renal cell carcinoma
     Dosage: UNK
     Route: 041
     Dates: start: 20220824, end: 20220907
  2. CABOMETYX [Suspect]
     Active Substance: CABOZANTINIB S-MALATE
     Indication: Metastatic renal cell carcinoma
     Dosage: 40 MG EVERYDAY
     Route: 048
     Dates: start: 20220824, end: 20220831
  3. CABOMETYX [Suspect]
     Active Substance: CABOZANTINIB S-MALATE
     Dosage: 40 MG EVERYDAY
     Route: 048
     Dates: start: 20221019, end: 20221115
  4. CABOMETYX [Suspect]
     Active Substance: CABOZANTINIB S-MALATE
     Dosage: 20 MG QOD
     Route: 048
     Dates: start: 20221116, end: 20221128
  5. CABOMETYX [Suspect]
     Active Substance: CABOZANTINIB S-MALATE
     Dosage: 20 MG QD
     Route: 048
     Dates: start: 20221210
  6. AMLODIPINE [Concomitant]
     Active Substance: AMLODIPINE BESYLATE
     Indication: Product used for unknown indication
     Dosage: EVERYDAY
     Route: 048
  7. LANSOPRAZOLE [Concomitant]
     Active Substance: LANSOPRAZOLE
     Indication: Product used for unknown indication
     Dosage: EVERYDAY
     Route: 048
  8. MIROGABALIN BESYLATE [Concomitant]
     Active Substance: MIROGABALIN BESYLATE
     Indication: Product used for unknown indication
     Dosage: 5 MG, Q12H
     Route: 048
  9. OTEZLA [Concomitant]
     Active Substance: APREMILAST
     Indication: Psoriasis
     Dosage: 30 MG, Q12H
     Route: 048
     Dates: start: 201710
  10. MAGNESIUM OXIDE [Concomitant]
     Active Substance: MAGNESIUM OXIDE
     Indication: Product used for unknown indication
     Dosage: 250 MG, Q8H
     Route: 048
  11. SENNOSIDES [Concomitant]
     Active Substance: SENNOSIDES
     Indication: Product used for unknown indication
     Dosage: EVERYDAY
     Route: 048

REACTIONS (8)
  - Type 2 diabetes mellitus [Recovering/Resolving]
  - Immune-mediated enterocolitis [Recovered/Resolved]
  - Liver disorder [Recovered/Resolved]
  - Hepatic function abnormal [Recovering/Resolving]
  - Hypothyroidism [Recovering/Resolving]
  - Psoriasis [Recovering/Resolving]
  - Malignant neoplasm progression [Unknown]
  - Haemoglobin decreased [Unknown]

NARRATIVE: CASE EVENT DATE: 20220601
